FAERS Safety Report 12450770 (Version 1)
Quarter: 2016Q2

REPORT INFORMATION
  Report Type: Spontaneous
  Country: US (occurrence: US)
  Receive Date: 20160609
  Receipt Date: 20160609
  Transmission Date: 20160815
  Serious: No
  Sender: FDA-Public Use
  Company Number: US-PERRIGO-16US000520

PATIENT
  Age: 80 Year
  Sex: Male
  Weight: 86.17 kg

DRUGS (7)
  1. PERMETHRIN. [Suspect]
     Active Substance: PERMETHRIN
     Indication: ACARODERMATITIS
     Dosage: 60 MG, PRN
     Route: 061
     Dates: start: 201504, end: 201601
  2. PERMETHRIN. [Suspect]
     Active Substance: PERMETHRIN
     Dosage: 60 G, SINGLE
     Route: 061
     Dates: start: 20160105, end: 20160105
  3. PERMETHRIN. [Suspect]
     Active Substance: PERMETHRIN
     Dosage: 60 G, SINGLE
     Route: 061
     Dates: start: 20160114, end: 20160114
  4. ANTIHYPERTENSIVES [Concomitant]
     Active Substance: UNSPECIFIED INGREDIENT
     Indication: HYPERTENSION
     Dosage: UNK
     Route: 065
  5. PERMETHRIN. [Suspect]
     Active Substance: PERMETHRIN
     Dosage: 60 G, SINGLE
     Route: 061
     Dates: start: 20160109, end: 20160109
  6. LIPID MODIFYING AGENTS [Concomitant]
     Active Substance: UNSPECIFIED INGREDIENT
     Indication: BLOOD CHOLESTEROL INCREASED
     Dosage: UNK
     Route: 065
  7. CARDIAC THERAPY [Concomitant]
     Active Substance: UNSPECIFIED INGREDIENT
     Indication: CARDIAC DISORDER
     Dosage: UNK
     Route: 065

REACTIONS (3)
  - Inappropriate schedule of drug administration [Recovered/Resolved]
  - Drug ineffective [Unknown]
  - Overdose [Recovered/Resolved]

NARRATIVE: CASE EVENT DATE: 201504
